FAERS Safety Report 11495816 (Version 6)
Quarter: 2016Q3

REPORT INFORMATION
  Report Type: Spontaneous
  Country: US (occurrence: US)
  Receive Date: 20150911
  Receipt Date: 20160817
  Transmission Date: 20161109
  Serious: No
  Sender: FDA-Public Use
  Company Number: US-PFIZER INC-2015297089

PATIENT
  Age: 63 Year
  Sex: Female

DRUGS (5)
  1. IMODIUM A-D [Concomitant]
     Active Substance: LOPERAMIDE HYDROCHLORIDE
     Dosage: UNK
  2. LISINOPRIL. [Concomitant]
     Active Substance: LISINOPRIL
     Dosage: UNK
  3. ONDANSETRON HCL [Concomitant]
     Active Substance: ONDANSETRON HYDROCHLORIDE
     Dosage: UNK
  4. INLYTA [Suspect]
     Active Substance: AXITINIB
     Indication: RENAL CANCER
     Dosage: 5 MG (1 TABLET), 2X/DAY
     Route: 048
  5. AMLODIPINE/BENAZEPRIL [Concomitant]
     Active Substance: AMLODIPINE BESYLATE\BENAZEPRIL HYDROCHLORIDE

REACTIONS (9)
  - Fatigue [Unknown]
  - Diarrhoea [Unknown]
  - Rash [Unknown]
  - Decreased appetite [Unknown]
  - Blood pressure increased [Recovering/Resolving]
  - Oral mucosal blistering [Unknown]
  - Hypotension [Unknown]
  - Oral pain [Unknown]
  - Blister [Unknown]
